FAERS Safety Report 17184417 (Version 1)
Quarter: 2019Q4

REPORT INFORMATION
  Report Type: Spontaneous
  Country: US (occurrence: US)
  Receive Date: 20191219
  Receipt Date: 20191219
  Transmission Date: 20200122
  Serious: Yes (Other)
  Sender: FDA-Public Use
  Company Number: None

PATIENT
  Age: 67 Year
  Sex: Male
  Weight: 80.4 kg

DRUGS (17)
  1. ATORVASTATIN 40MG [Concomitant]
     Active Substance: ATORVASTATIN
     Dates: start: 20191106, end: 20191210
  2. CLOPIDOGREL [Concomitant]
     Active Substance: CLOPIDOGREL BISULFATE
     Dates: start: 20191125
  3. METOCLOPRAMIDE 5MG [Concomitant]
     Active Substance: METOCLOPRAMIDE
     Dates: start: 20191128, end: 20191210
  4. MIDODRINE [Concomitant]
     Active Substance: MIDODRINE
     Dates: start: 20191123
  5. FERROUS SULFATE 325MG [Concomitant]
     Active Substance: FERROUS SULFATE
     Dates: start: 20191201
  6. GABAPENTIN 100MG [Concomitant]
     Active Substance: GABAPENTIN
     Dates: start: 20191121
  7. VALGANCICLOVIR. [Suspect]
     Active Substance: VALGANCICLOVIR
  8. ACETAMINOPHEN 500MG [Concomitant]
     Active Substance: ACETAMINOPHEN
     Dates: start: 20191106
  9. EPOEITIN ALFA [Concomitant]
     Dates: start: 20191106
  10. MIRTAZIPINE [Concomitant]
     Active Substance: MIRTAZAPINE
     Dates: start: 20191130, end: 20191212
  11. ZOSYN [Concomitant]
     Active Substance: PIPERACILLIN SODIUM\TAZOBACTAM SODIUM
     Dates: start: 20191204, end: 20191214
  12. HEPARIN [Concomitant]
     Active Substance: HEPARIN SODIUM
     Dates: start: 20191113
  13. CALCITRIOL 0.5MCG [Concomitant]
     Dates: start: 20191107
  14. ASPIRIN 81MG [Concomitant]
     Active Substance: ASPIRIN
     Dates: start: 20191106, end: 20191205
  15. PANTOPRAZOLE 40MG [Concomitant]
     Active Substance: PANTOPRAZOLE SODIUM
     Dates: start: 20191106
  16. GANCICLOVIR. [Suspect]
     Active Substance: GANCICLOVIR
     Dosage: ?          OTHER FREQUENCY:TUTHSA;?
     Route: 041
     Dates: start: 20191205, end: 20191206
  17. FLUCONAZOLE 200MG [Concomitant]
     Active Substance: FLUCONAZOLE
     Dates: start: 20191204, end: 20191210

REACTIONS (1)
  - Thrombocytopenia [None]

NARRATIVE: CASE EVENT DATE: 20191209
